FAERS Safety Report 15420279 (Version 1)
Quarter: 2018Q4

REPORT INFORMATION
  Report Type: Spontaneous
  Country: US (occurrence: US)
  Receive Date: 20180924
  Receipt Date: 20180924
  Transmission Date: 20190204
  Serious: Yes (Life-Threatening, Hospitalization)
  Sender: FDA-Public Use
  Company Number: US-JACOBUS PHARMACEUTICAL COMPANY, INC.-2055281

PATIENT
  Age: 23 Year
  Sex: Male

DRUGS (1)
  1. DAPSONE. [Suspect]
     Active Substance: DAPSONE

REACTIONS (14)
  - Vomiting [None]
  - Tachycardia [None]
  - Ocular icterus [None]
  - Continuous haemodiafiltration [None]
  - Confusional state [Recovered/Resolved with Sequelae]
  - Pyrexia [None]
  - Insomnia [None]
  - Lymphadenopathy [None]
  - Delusion [None]
  - Oral mucosal exfoliation [None]
  - Tachypnoea [None]
  - Roseolovirus test positive [None]
  - Abdominal pain [None]
  - Drug reaction with eosinophilia and systemic symptoms [None]
